FAERS Safety Report 8091597-1 (Version None)
Quarter: 2012Q1

REPORT INFORMATION
  Report Type: 
  Country: None (occurrence: None)
  Receive Date: 20120131
  Receipt Date: 20120125
  Transmission Date: 20120608
  Serious: No
  Sender: FDA-Public Use
  Company Number: US-PFIZER INC-2012021194

PATIENT
  Sex: Female

DRUGS (1)
  1. ADVIL LIQUI-GELS [Suspect]
     Indication: PROCEDURAL PAIN
     Dosage: 600 MG, 1X/DAY
     Route: 048
     Dates: start: 20100101, end: 20120122

REACTIONS (5)
  - INFLUENZA LIKE ILLNESS [None]
  - VOMITING [None]
  - IRRITABILITY [None]
  - MALAISE [None]
  - NAUSEA [None]
